FAERS Safety Report 18989751 (Version 1)
Quarter: 2021Q1

REPORT INFORMATION
  Report Type: Spontaneous
  Country: US (occurrence: US)
  Receive Date: 20210309
  Receipt Date: 20210309
  Transmission Date: 20210420
  Serious: No
  Sender: FDA-Public Use
  Company Number: US-JNJFOC-20210248533

PATIENT
  Age: 50 Year
  Sex: Female
  Weight: 59.02 kg

DRUGS (1)
  1. ZYRTEC [Suspect]
     Active Substance: CETIRIZINE HYDROCHLORIDE
     Indication: MULTIPLE ALLERGIES
     Dosage: LAST DRUG ADMIN DATE: 23/FEB/2021
     Route: 048
     Dates: start: 20210222

REACTIONS (2)
  - Drug ineffective [Unknown]
  - Nonspecific reaction [Unknown]

NARRATIVE: CASE EVENT DATE: 202102
